FAERS Safety Report 13511060 (Version 3)
Quarter: 2017Q2

REPORT INFORMATION
  Report Type: Spontaneous
  Country: CN (occurrence: CN)
  Receive Date: 20170503
  Receipt Date: 20170525
  Transmission Date: 20170830
  Serious: Yes (Other)
  Sender: FDA-Public Use
  Company Number: CN-ABBVIE-17P-035-1963352-00

PATIENT
  Age: 90 Year
  Sex: Male

DRUGS (2)
  1. DEPAKINE CHRONO [Suspect]
     Active Substance: VALPROATE SODIUM
     Indication: EPILEPSY
     Dosage: TABLET, EXTENDED RELEASE
     Route: 048
     Dates: start: 20170217
  2. DEPAKINE CHRONO [Suspect]
     Active Substance: VALPROATE SODIUM
     Dosage: EXTENDED RELEASE, 500 MG TWICE DAILY
     Route: 048

REACTIONS (5)
  - Epilepsy [Recovered/Resolved]
  - Tongue biting [Recovered/Resolved]
  - Self-medication [Recovered/Resolved]
  - Drug level decreased [Unknown]
  - Tic [Recovered/Resolved]

NARRATIVE: CASE EVENT DATE: 20170425
